FAERS Safety Report 21890786 (Version 1)
Quarter: 2023Q1

REPORT INFORMATION
  Report Type: Spontaneous
  Country: US (occurrence: US)
  Receive Date: 20230120
  Receipt Date: 20230120
  Transmission Date: 20230417
  Serious: No
  Sender: FDA-Public Use
  Company Number: US-ANTARES PHARMA, INC.-2022-SPO-SU-0654

PATIENT

DRUGS (1)
  1. SUMATRIPTAN [Suspect]
     Active Substance: SUMATRIPTAN
     Indication: Product used for unknown indication
     Dosage: 6 MILLIGRAM, UNKNOWN
     Route: 058

REACTIONS (4)
  - Emergency care [Unknown]
  - Injection site pain [Not Recovered/Not Resolved]
  - Injection site warmth [Unknown]
  - Product administered at inappropriate site [Unknown]
